FAERS Safety Report 5451456-7 (Version None)
Quarter: 2007Q3

REPORT INFORMATION
  Report Type: 
  Country: None (occurrence: None)
  Receive Date: 20070913
  Receipt Date: 20070831
  Transmission Date: 20080115
  Serious: Yes (Death)
  Sender: FDA-Public Use
  Company Number: FR-ROCHE-514940

PATIENT
  Age: 58 Year
  Sex: Female

DRUGS (2)
  1. XELODA [Suspect]
     Dosage: DOSAGE REPORTED AS 2000 MG/C.
     Route: 048
     Dates: start: 20070531, end: 20070628
  2. TYKERB [Suspect]
     Route: 065

REACTIONS (1)
  - CARDIAC TAMPONADE [None]
